FAERS Safety Report 6342214-X (Version None)
Quarter: 2009Q3

REPORT INFORMATION
  Report Type: 
  Country: None (occurrence: None)
  Receive Date: 20090903
  Receipt Date: 20090903
  Transmission Date: 20100115
  Serious: Yes (Other)
  Sender: FDA-Public Use
  Company Number: None

PATIENT
  Age: 62 Year
  Sex: Female

DRUGS (4)
  1. PRAVASTATIN [Suspect]
     Dosage: 20MG AT BEDTIME PO
     Route: 048
     Dates: start: 20090427, end: 20090713
  2. METOPROLOL TARTRATE [Concomitant]
  3. NIFEDIPINE [Concomitant]
  4. PERCOCET [Concomitant]

REACTIONS (2)
  - HALLUCINATION [None]
  - NIGHTMARE [None]
